FAERS Safety Report 18576661 (Version 4)
Quarter: 2022Q1

REPORT INFORMATION
  Report Type: Spontaneous
  Country: FR (occurrence: FR)
  Receive Date: 20201203
  Receipt Date: 20220114
  Transmission Date: 20220423
  Serious: Yes (Hospitalization, Other)
  Sender: FDA-Public Use
  Company Number: None

PATIENT
  Age: 47 Year
  Sex: Male
  Weight: 78 kg

DRUGS (3)
  1. BIKTARVY [Suspect]
     Active Substance: BICTEGRAVIR SODIUM\EMTRICITABINE\TENOFOVIR ALAFENAMIDE FUMARATE
     Indication: HIV infection
     Dosage: 1 DOSAGE FORM, QD
     Route: 048
     Dates: start: 20181201, end: 20210312
  2. BIKTARVY [Suspect]
     Active Substance: BICTEGRAVIR SODIUM\EMTRICITABINE\TENOFOVIR ALAFENAMIDE FUMARATE
     Dosage: UNK
     Route: 065
  3. CHOLECALCIFEROL [Concomitant]
     Active Substance: CHOLECALCIFEROL
     Dosage: UNK

REACTIONS (6)
  - Pancreatitis necrotising [Recovered/Resolved]
  - Pancreatitis [Recovered/Resolved]
  - Pancreatitis [Recovered/Resolved]
  - Pancreatitis [Recovered/Resolved]
  - Pancreatitis [Recovered/Resolved]
  - Weight abnormal [Unknown]

NARRATIVE: CASE EVENT DATE: 20201026
